FAERS Safety Report 5499997-0 (Version None)
Quarter: 2007Q4

REPORT INFORMATION
  Report Type: 
  Country: None (occurrence: None)
  Receive Date: 20071026
  Receipt Date: 20071016
  Transmission Date: 20080405
  Serious: Yes (Life-Threatening)
  Sender: FDA-Public Use
  Company Number: JP-PFIZER INC-2007087967

PATIENT
  Sex: Female

DRUGS (1)
  1. SULPERAZON [Suspect]
     Route: 042

REACTIONS (1)
  - MELAENA [None]
